FAERS Safety Report 21844099 (Version 2)
Quarter: 2023Q1

REPORT INFORMATION
  Report Type: Spontaneous
  Country: US (occurrence: US)
  Receive Date: 20230110
  Receipt Date: 20230217
  Transmission Date: 20230417
  Serious: No
  Sender: FDA-Public Use
  Company Number: US-BAYER-2023A001925

PATIENT
  Age: 87 Year
  Sex: Female

DRUGS (1)
  1. MIRALAX [Suspect]
     Active Substance: POLYETHYLENE GLYCOL 3350
     Dosage: 1 PACKET A DAY DOSE
     Route: 048

REACTIONS (2)
  - Abdominal discomfort [Recovered/Resolved]
  - Product solubility abnormal [None]

NARRATIVE: CASE EVENT DATE: 20230105
